FAERS Safety Report 9537345 (Version 1)
Quarter: 2013Q3

REPORT INFORMATION
  Report Type: Report from Study
  Country: DE (occurrence: DE)
  Receive Date: 20130919
  Receipt Date: 20130919
  Transmission Date: 20140515
  Serious: Yes (Hospitalization)
  Sender: FDA-Public Use
  Company Number: DE-ROCHE-1276663

PATIENT
  Age: 81 Year
  Sex: Male
  Weight: 60 kg

DRUGS (8)
  1. BEVACIZUMAB [Suspect]
     Indication: NEOPLASM MALIGNANT
     Route: 042
     Dates: start: 20090818, end: 20100505
  2. DIGITOXIN [Concomitant]
     Indication: CARDIAC DISORDER
     Route: 048
  3. L-THYROXIN [Concomitant]
     Indication: THYROID DISORDER
     Route: 048
     Dates: start: 20100104
  4. TAMSULOSIN [Concomitant]
     Indication: PROSTATIC DISORDER
     Route: 048
  5. PASPERTIN (GERMANY) [Concomitant]
     Indication: NAUSEA
     Route: 048
  6. DIMENHYDRINAT [Concomitant]
     Indication: NAUSEA
     Route: 048
  7. METAMIZOL [Concomitant]
     Indication: PAIN
     Route: 048
  8. LOPERAMIDE [Concomitant]
     Indication: DIARRHOEA
     Route: 048

REACTIONS (4)
  - Cardiac failure [Recovered/Resolved]
  - Tachycardia [Recovered/Resolved]
  - Atrial fibrillation [Recovered/Resolved]
  - Hypothyroidism [Recovered/Resolved]
